FAERS Safety Report 16458301 (Version 2)
Quarter: 2019Q3

REPORT INFORMATION
  Report Type: Spontaneous
  Country: US (occurrence: US)
  Receive Date: 20190620
  Receipt Date: 20190821
  Transmission Date: 20191004
  Serious: Yes (Hospitalization, Other)
  Sender: FDA-Public Use
  Company Number: US-PFIZER INC-2019222775

PATIENT
  Age: 53 Year
  Sex: Male
  Weight: 72.56 kg

DRUGS (27)
  1. SIROLIMUS. [Suspect]
     Active Substance: SIROLIMUS
     Indication: PANCREAS TRANSPLANT
     Dosage: 1 MG, DAILY
     Route: 048
  2. SIROLIMUS. [Suspect]
     Active Substance: SIROLIMUS
     Indication: TRANSPLANT REJECTION
     Dosage: 1.5 MG, 1X/DAY (ONE 1MG TABLET AND ONE 0.5MG TABLET ONCE IN THE MORNING)
     Route: 048
  3. TACROLIMUS. [Concomitant]
     Active Substance: TACROLIMUS
     Dosage: 3 MG, UNK
  4. MAGNESIUM OXIDE. [Concomitant]
     Active Substance: MAGNESIUM OXIDE
     Indication: ELECTROLYTE IMBALANCE
     Dosage: 800 MG, 3X/DAY
     Route: 048
     Dates: start: 201712
  5. HYDROMORPHONE [Concomitant]
     Active Substance: HYDROMORPHONE
     Indication: FACIAL PAIN
  6. RAPAMUNE [Suspect]
     Active Substance: SIROLIMUS
     Indication: LIVER TRANSPLANT
     Dosage: 3 MG, DAILY
     Route: 048
     Dates: start: 2018
  7. RAPAMUNE [Suspect]
     Active Substance: SIROLIMUS
     Indication: SMALL INTESTINE TRANSPLANT
     Dosage: 2 MG, DAILY
     Route: 048
  8. SIROLIMUS. [Suspect]
     Active Substance: SIROLIMUS
     Indication: SMALL INTESTINE TRANSPLANT
     Dosage: 2 MG, DAILY
     Route: 048
     Dates: start: 2018
  9. GABAPENTIN. [Concomitant]
     Active Substance: GABAPENTIN
     Indication: NEURALGIA
     Dosage: 400 MG, 1X/DAY
     Route: 048
     Dates: start: 201812
  10. ZOFRAN [Concomitant]
     Active Substance: ONDANSETRON HYDROCHLORIDE
     Indication: NAUSEA
     Dosage: UNK (OCCASSIONALLY)
  11. DIPHENOXYLATE/ATROPINE [Concomitant]
     Active Substance: ATROPINE\DIPHENOXYLATE
     Indication: ANTIDIARRHOEAL SUPPORTIVE CARE
     Dosage: 2 DF, AS NEEDED (2-3 TIMES DAILY AS NEEDED)
     Route: 048
  12. RAPAMUNE [Suspect]
     Active Substance: SIROLIMUS
     Indication: PANCREAS TRANSPLANT
     Dosage: 1 MG, DAILY
     Route: 048
  13. TACROLIMUS. [Concomitant]
     Active Substance: TACROLIMUS
     Indication: TRANSPLANT REJECTION
     Dosage: 2 MG, 2X/DAY
     Route: 048
     Dates: start: 201712
  14. SULFAMETHOXAZOLE/TRIMETHOPRIM [Concomitant]
     Indication: ANTIBIOTIC PROPHYLAXIS
     Dosage: 1 DF, 1X/DAY
     Route: 048
     Dates: start: 201712
  15. ZOLIDEN [Concomitant]
     Indication: SLEEP DISORDER
     Dosage: 10 MG, AS NEEDED (ONCE AT BED TIME AS NEEDED)
     Route: 048
  16. DIAZEPAM. [Concomitant]
     Active Substance: DIAZEPAM
     Indication: TREMOR
     Dosage: 10 MG, 3X/DAY
     Route: 048
  17. TETRA [TETRACYCLINE HYDROCHLORIDE] [Concomitant]
     Active Substance: TETRACYCLINE HYDROCHLORIDE
     Indication: SEIZURE
     Dosage: 500 MG, 1X/DAY
     Route: 048
  18. PREDNISONE. [Concomitant]
     Active Substance: PREDNISONE
     Dosage: 20 MG, UNK
  19. IMODIUM [Concomitant]
     Active Substance: LOPERAMIDE HYDROCHLORIDE
     Indication: ANTIDIARRHOEAL SUPPORTIVE CARE
     Dosage: 2 DF, AS NEEDED
     Route: 048
  20. DIAZEPAM. [Concomitant]
     Active Substance: DIAZEPAM
     Indication: ANGINA PECTORIS
  21. AMLODIPINE BESYLATE. [Concomitant]
     Active Substance: AMLODIPINE BESYLATE
     Indication: HYPERTENSION
     Dosage: 5 MG, 1X/DAY
     Route: 048
     Dates: start: 201904
  22. RAPAMUNE [Suspect]
     Active Substance: SIROLIMUS
     Indication: TRANSPLANT REJECTION
     Dosage: 1.5 MG, 1X/DAY (ONE 1MG TABLET AND ONE 0.5MG TABLET ONCE IN THE MORNING)
     Route: 048
  23. RAPAMUNE [Suspect]
     Active Substance: SIROLIMUS
     Indication: IMMUNOSUPPRESSANT DRUG THERAPY
     Dosage: 4 MG, 1X/DAY
     Dates: start: 201812
  24. HYDROMORPHONE [Concomitant]
     Active Substance: HYDROMORPHONE
     Indication: EYE PAIN
     Dosage: 8 MG, AS NEEDED (EVERY 4 HOURS AS NEEDED)
     Route: 048
     Dates: start: 2018
  25. SIROLIMUS. [Suspect]
     Active Substance: SIROLIMUS
     Indication: LIVER TRANSPLANT
     Dosage: 3 MG, DAILY
     Route: 048
     Dates: start: 2018
  26. VALGANCICLOVIR. [Concomitant]
     Active Substance: VALGANCICLOVIR
     Indication: ANTIVIRAL TREATMENT
     Dosage: 450 MG, 1X/DAY
     Route: 048
     Dates: start: 201712
  27. PANTOPRAZOLE [Concomitant]
     Active Substance: PANTOPRAZOLE
     Indication: GASTROOESOPHAGEAL REFLUX DISEASE
     Dosage: 40 MG, 2X/DAY
     Route: 048

REACTIONS (5)
  - Product use in unapproved indication [Unknown]
  - Malaise [Recovered/Resolved]
  - Sinusitis fungal [Recovered/Resolved]
  - Seizure like phenomena [Recovered/Resolved]
  - Off label use [Unknown]

NARRATIVE: CASE EVENT DATE: 2018
